FAERS Safety Report 11568872 (Version 2)
Quarter: 2016Q1

REPORT INFORMATION
  Report Type: Spontaneous
  Country: IT (occurrence: IT)
  Receive Date: 20150929
  Receipt Date: 20160219
  Transmission Date: 20160525
  Serious: Yes (Hospitalization)
  Sender: FDA-Public Use
  Company Number: IT-DEP_12746_2015

PATIENT
  Age: 39 Year
  Sex: Female

DRUGS (15)
  1. VALDORM [Concomitant]
     Active Substance: VALERIAN
     Dosage: DF
  2. DELTACORTENE [Concomitant]
     Active Substance: PREDNISONE
     Dosage: DF
  3. PALEXIA [Suspect]
     Active Substance: TAPENTADOL HYDROCHLORIDE
     Indication: PAIN
     Dosage: 100 MG, ONCE
     Route: 048
     Dates: start: 20150817, end: 20150817
  4. SINGULAIR [Concomitant]
     Active Substance: MONTELUKAST SODIUM
     Dosage: DF
  5. DIBASE [Concomitant]
     Active Substance: CHOLECALCIFEROL
     Dosage: DF
  6. SEROQUEL [Concomitant]
     Active Substance: QUETIAPINE FUMARATE
     Dosage: DF
  7. LEDERFOLIN [Concomitant]
     Active Substance: LEUCOVORIN CALCIUM
     Dosage: DF
  8. ARCOXIA [Concomitant]
     Active Substance: ETORICOXIB
     Dosage: DF
  9. NEXIUM [Concomitant]
     Active Substance: ESOMEPRAZOLE MAGNESIUM
     Dosage: DF
  10. SEACOR [Concomitant]
     Active Substance: OMEGA-3 FATTY ACIDS
     Dosage: DF
  11. STILNOX [Concomitant]
     Active Substance: ZOLPIDEM TARTRATE
     Dosage: DF
  12. TAVOR (LORAZEPAM) [Concomitant]
     Active Substance: LORAZEPAM
     Dosage: DF
  13. GABAPENTIN. [Concomitant]
     Active Substance: GABAPENTIN
     Dosage: DF
  14. FOSTER [Concomitant]
     Active Substance: BECLOMETHASONE\FORMOTEROL
     Dosage: DF
  15. EUTIROX [Concomitant]
     Active Substance: LEVOTHYROXINE SODIUM
     Dosage: DF

REACTIONS (4)
  - Drug abuse [Unknown]
  - Sopor [Unknown]
  - Drug interaction [Unknown]
  - Dyspnoea [Unknown]

NARRATIVE: CASE EVENT DATE: 20150817
